FAERS Safety Report 9492319 (Version 1)
Quarter: 2013Q3

REPORT INFORMATION
  Report Type: Spontaneous
  Country: FR (occurrence: FR)
  Receive Date: 20130830
  Receipt Date: 20130830
  Transmission Date: 20140515
  Serious: Yes (Hospitalization)
  Sender: FDA-Public Use
  Company Number: PHHY2013FR092534

PATIENT
  Age: 61 Year
  Sex: Female

DRUGS (7)
  1. DOCETAXEL SANDOZ [Suspect]
     Indication: BREAST CANCER
     Dosage: 170 MG, QD
     Route: 042
     Dates: start: 20130521, end: 20130610
  2. ONDANSETRON AGUETTANT [Suspect]
     Indication: PREMEDICATION
     Dosage: 8 MG, QD
     Route: 042
     Dates: start: 20130521
  3. SOLUMEDROL [Suspect]
     Dosage: 80 MG, QD
     Route: 042
     Dates: start: 20130521
  4. METFORMIN [Concomitant]
     Route: 065
  5. COVERSYL [Concomitant]
     Route: 065
  6. KARDEGIC [Concomitant]
     Route: 065
  7. ATORVASTATIN [Concomitant]
     Route: 065

REACTIONS (5)
  - Palmar-plantar erythrodysaesthesia syndrome [Recovered/Resolved]
  - Skin exfoliation [Recovered/Resolved]
  - Pain [Recovered/Resolved]
  - Erythema [Recovered/Resolved]
  - Inflammation [Recovered/Resolved]
